FAERS Safety Report 4923424-2 (Version None)
Quarter: 2006Q1

REPORT INFORMATION
  Report Type: 
  Country: None (occurrence: None)
  Receive Date: 20060222
  Receipt Date: 20060222
  Transmission Date: 20060701
  Serious: No
  Sender: FDA-Public Use
  Company Number: None

PATIENT

DRUGS (5)
  1. CEFAZOLIN [Suspect]
     Dosage: INJECTABLE
  2. NAFCILLIN [Suspect]
     Dosage: INJECTABLE
  3. NAFCILLIN [Suspect]
     Dosage: INJECTABLE
  4. OXACILLIN [Suspect]
     Dosage: INJECTABLE
  5. OXACILLIN [Suspect]

REACTIONS (1)
  - MEDICATION ERROR [None]
